FAERS Safety Report 8549413-7 (Version None)
Quarter: 2012Q3

REPORT INFORMATION
  Report Type: 
  Country: None (occurrence: None)
  Receive Date: 20120730
  Receipt Date: 20120723
  Transmission Date: 20120928
  Serious: Yes (Other)
  Sender: FDA-Public Use
  Company Number: ES-PFIZER INC-2012178129

PATIENT
  Age: 65 Year
  Sex: Male

DRUGS (1)
  1. CAVERJECT [Suspect]
     Dosage: 20 MCG UNK
     Dates: start: 20000101

REACTIONS (4)
  - DRUG INEFFECTIVE [None]
  - INGUINAL HERNIA [None]
  - ORCHITIS [None]
  - EXPIRED DRUG ADMINISTERED [None]
